FAERS Safety Report 7605836-1 (Version None)
Quarter: 2011Q3

REPORT INFORMATION
  Report Type: 
  Country: None (occurrence: None)
  Receive Date: 20110713
  Receipt Date: 20110704
  Transmission Date: 20111222
  Serious: Yes (Hospitalization)
  Sender: FDA-Public Use
  Company Number: FR-JNJFOC-20110702388

PATIENT
  Sex: Female
  Weight: 43.2 kg

DRUGS (2)
  1. AZATHIOPRINE [Concomitant]
  2. REMICADE [Suspect]
     Indication: CROHN'S DISEASE
     Route: 042
     Dates: start: 20090430

REACTIONS (1)
  - CAMPYLOBACTER INFECTION [None]
